FAERS Safety Report 5376447-6 (Version None)
Quarter: 2007Q3

REPORT INFORMATION
  Report Type: 
  Country: None (occurrence: None)
  Receive Date: 20070702
  Receipt Date: 20070622
  Transmission Date: 20080115
  Serious: Yes (Other)
  Sender: FDA-Public Use
  Company Number: GB-PFIZER INC-2007052167

PATIENT
  Sex: Female

DRUGS (1)
  1. PREGABALIN [Suspect]
     Route: 048

REACTIONS (2)
  - HYPERACUSIS [None]
  - NERVOUS SYSTEM SURGERY [None]
